FAERS Safety Report 16436006 (Version 1)
Quarter: 2019Q2

REPORT INFORMATION
  Report Type: Spontaneous
  Country: US (occurrence: US)
  Receive Date: 20190614
  Receipt Date: 20190614
  Transmission Date: 20190711
  Serious: No
  Sender: FDA-Public Use
  Company Number: US-JNJFOC-20170514496

PATIENT
  Sex: Male

DRUGS (1)
  1. TYLENOL EXTRA STRENGTH [Suspect]
     Active Substance: ACETAMINOPHEN
     Indication: BACK PAIN
     Dosage: 3 TO 4, EVERY FEW HOURS, MULTIPLE TIMES IN A DAY
     Route: 048

REACTIONS (3)
  - Product administration error [Unknown]
  - Drug ineffective [Unknown]
  - Overdose [Unknown]
